FAERS Safety Report 10375378 (Version 3)
Quarter: 2014Q3

REPORT INFORMATION
  Report Type: Report from Study
  Country: US (occurrence: US)
  Receive Date: 20140811
  Receipt Date: 20140923
  Transmission Date: 20150326
  Serious: Yes (Other)
  Sender: FDA-Public Use
  Company Number: US-SA-2014SA105092

PATIENT
  Age: 72 Year
  Sex: Female

DRUGS (2)
  1. SOLOSTAR [Concomitant]
     Active Substance: DEVICE
  2. LANTUS SOLOSTAR [Suspect]
     Active Substance: INSULIN GLARGINE
     Indication: DIABETES MELLITUS
     Dosage: DOSE: 30
     Route: 065
     Dates: start: 2009

REACTIONS (9)
  - Cataract operation [Unknown]
  - Pruritus [Recovered/Resolved]
  - Back pain [Unknown]
  - Off label use [Unknown]
  - Arthralgia [Unknown]
  - Intervertebral disc protrusion [Unknown]
  - Neck pain [Unknown]
  - Hypersensitivity [Unknown]
  - Dental caries [Unknown]

NARRATIVE: CASE EVENT DATE: 2009
